FAERS Safety Report 4752764-5 (Version None)
Quarter: 2005Q3

REPORT INFORMATION
  Report Type: 
  Country: None (occurrence: None)
  Receive Date: 20050823
  Receipt Date: 20050425
  Transmission Date: 20060218
  Serious: Yes (Other)
  Sender: FDA-Public Use
  Company Number: 2005064707

PATIENT
  Age: 50 Year
  Sex: Female

DRUGS (2)
  1. NORVASC [Suspect]
     Indication: ILL-DEFINED DISORDER
     Dosage: (5 MG)
  2. ACE INHIBITOR NOS (ACE INHIBITOR NOS) [Concomitant]

REACTIONS (2)
  - GINGIVAL BLEEDING [None]
  - GINGIVAL HYPERPLASIA [None]
